FAERS Safety Report 26070482 (Version 1)
Quarter: 2025Q4

REPORT INFORMATION
  Report Type: Spontaneous
  Country: US (occurrence: US)
  Receive Date: 20251120
  Receipt Date: 20251120
  Transmission Date: 20260117
  Serious: No
  Sender: BRISTOL-MYERS SQUIBB COMPANY
  Company Number: US-BRISTOL-MYERS SQUIBB COMPANY-2025-157054

PATIENT
  Age: 70 Year
  Sex: Female

DRUGS (1)
  1. POMALYST [Suspect]
     Active Substance: POMALIDOMIDE
     Indication: Plasma cell myeloma
     Dosage: DAILY FOR 21 DAYS ON AND 7 DAYS OFF
     Route: 048

REACTIONS (7)
  - Asthenia [Unknown]
  - Pain [Unknown]
  - Nerve compression [Unknown]
  - Blood glucose decreased [Unknown]
  - Ligament rupture [Unknown]
  - Influenza [Unknown]
  - Protein total abnormal [Not Recovered/Not Resolved]
